FAERS Safety Report 12407559 (Version 19)
Quarter: 2018Q4

REPORT INFORMATION
  Report Type: Report from Study
  Country: CA (occurrence: CA)
  Receive Date: 20160526
  Receipt Date: 20181217
  Transmission Date: 20190204
  Serious: Yes (Death, Hospitalization, Other)
  Sender: FDA-Public Use
  Company Number: PHHY2015CA025240

PATIENT
  Age: 89 Year
  Sex: Male

DRUGS (8)
  1. FUROSEMIDE. [Concomitant]
     Active Substance: FUROSEMIDE
     Indication: PRODUCT USED FOR UNKNOWN INDICATION
     Dosage: 40 MG, QD (WITH BREAKFAST)
     Route: 065
  2. CARVEDILOL. [Concomitant]
     Active Substance: CARVEDILOL
     Indication: PRODUCT USED FOR UNKNOWN INDICATION
     Dosage: 6.25 MG, BID
     Route: 048
  3. LASIX [Concomitant]
     Active Substance: FUROSEMIDE
     Indication: PERIPHERAL SWELLING
     Dosage: 40 MG, BID
     Route: 065
  4. LASIX [Concomitant]
     Active Substance: FUROSEMIDE
     Dosage: UNK
     Route: 042
  5. SANDOSTATIN LAR DEPOT [Suspect]
     Active Substance: OCTREOTIDE ACETATE
     Indication: NEUROENDOCRINE TUMOUR
     Dosage: 20 MG, QMO (EVERY 4 WEEKS)
     Route: 030
     Dates: start: 20140819
  6. SANDOSTATIN LAR DEPOT [Suspect]
     Active Substance: OCTREOTIDE ACETATE
     Dosage: 30 MG, QMO (EVERY 4 WEEKS)
     Route: 030
     Dates: start: 20150925
  7. LASIX [Concomitant]
     Active Substance: FUROSEMIDE
     Indication: PRODUCT USED FOR UNKNOWN INDICATION
     Dosage: 40 MG, QD
     Route: 065
  8. RAMIPRIL. [Concomitant]
     Active Substance: RAMIPRIL
     Indication: PRODUCT USED FOR UNKNOWN INDICATION
     Dosage: 1 DF, UNK
     Route: 065

REACTIONS (34)
  - Blood pressure diastolic decreased [Unknown]
  - Defaecation urgency [Unknown]
  - Faeces hard [Unknown]
  - Fluid retention [Unknown]
  - Dyspnoea [Unknown]
  - Metastases to lung [Unknown]
  - Second primary malignancy [Unknown]
  - Blood pressure decreased [Unknown]
  - Deafness [Unknown]
  - Musculoskeletal stiffness [Unknown]
  - Pain in extremity [Unknown]
  - Hypoacusis [Unknown]
  - Spinal fracture [Unknown]
  - Death [Fatal]
  - Cardiac failure [Unknown]
  - Diarrhoea [Unknown]
  - Dehydration [Unknown]
  - Pleural effusion [Unknown]
  - Skin laceration [Unknown]
  - Malignant neoplasm progression [Unknown]
  - Oedema [Unknown]
  - Peripheral swelling [Recovering/Resolving]
  - Nausea [Unknown]
  - Back pain [Unknown]
  - Fall [Unknown]
  - Pneumonia [Unknown]
  - Erythema [Unknown]
  - Insomnia [Unknown]
  - Weight decreased [Unknown]
  - Skin cancer [Unknown]
  - Cardiac failure congestive [Unknown]
  - Dizziness [Unknown]
  - Blood sodium decreased [Unknown]
  - Constipation [Unknown]

NARRATIVE: CASE EVENT DATE: 20150227
